FAERS Safety Report 6438379-1 (Version None)
Quarter: 2009Q4

REPORT INFORMATION
  Report Type: 
  Country: None (occurrence: None)
  Receive Date: 20091109
  Receipt Date: 20091014
  Transmission Date: 20100525
  Serious: No
  Sender: FDA-Public Use
  Company Number: 109314

PATIENT
  Age: 31 Year
  Sex: Male

DRUGS (3)
  1. DAIVOBET [Suspect]
     Indication: PSORIASIS
     Dosage: (1 IN 1 D)	TOPICAL
     Route: 061
     Dates: start: 20080526
  2. ELCON (MOMETASONE FUROATE) [Concomitant]
  3. TAR SHAMPOO (COAL TAR) [Concomitant]

REACTIONS (1)
  - HALLUCINATION, VISUAL [None]
